FAERS Safety Report 4831072-8 (Version None)
Quarter: 2005Q4

REPORT INFORMATION
  Report Type: 
  Country: None (occurrence: None)
  Receive Date: 20051116
  Receipt Date: 20051116
  Transmission Date: 20060501
  Serious: Yes (Hospitalization)
  Sender: FDA-Public Use
  Company Number: None

PATIENT
  Age: 43 Year
  Sex: Male
  Weight: 78.4 kg

DRUGS (1)
  1. VERIELLA ZOSTOR IMMUNE GLOBULIN [Suspect]
     Indication: VARICELLA
     Dosage: 625 UNITS ONCE IM
     Route: 030
     Dates: start: 20050903

REACTIONS (12)
  - BACTERAEMIA [None]
  - BLOOD GLUCOSE DECREASED [None]
  - CONFUSIONAL STATE [None]
  - DISORIENTATION [None]
  - HEADACHE [None]
  - MENINGITIS ASEPTIC [None]
  - MENINGITIS BACTERIAL [None]
  - MENINGITIS VIRAL [None]
  - PROTEIN TOTAL INCREASED [None]
  - PYREXIA [None]
  - RED BLOOD CELL COUNT DECREASED [None]
  - WHITE BLOOD CELL COUNT DECREASED [None]
